FAERS Safety Report 5524224-5 (Version None)
Quarter: 2007Q4

REPORT INFORMATION
  Report Type: 
  Country: None (occurrence: None)
  Receive Date: 20071121
  Receipt Date: 20070907
  Transmission Date: 20080405
  Serious: Yes (Disabling, Other)
  Sender: FDA-Public Use
  Company Number: FR-PFIZER INC-2007065397

PATIENT
  Sex: Male
  Weight: 70 kg

DRUGS (6)
  1. SALAZOPYRINE [Suspect]
     Indication: RHEUMATOID ARTHRITIS
     Dosage: TEXT:6 TABLETS
     Route: 048
     Dates: start: 19970101, end: 20070626
  2. METHOTREXATE [Concomitant]
     Route: 048
  3. KETOPROFEN [Concomitant]
     Route: 048
  4. PREDNISONE TAB [Concomitant]
     Route: 048
  5. ALLOPURINOL [Concomitant]
     Indication: HYPERURICAEMIA
     Route: 048
  6. CIMETIDINE [Concomitant]
     Route: 048
     Dates: start: 19970101

REACTIONS (1)
  - AXONAL NEUROPATHY [None]
